FAERS Safety Report 5260116-7 (Version None)
Quarter: 2007Q1

REPORT INFORMATION
  Report Type: 
  Country: None (occurrence: None)
  Receive Date: 20070309
  Receipt Date: 20060320
  Transmission Date: 20070707
  Serious: No
  Sender: FDA-Public Use
  Company Number: US-GLAXOSMITHKLINE-A0597974A

PATIENT
  Age: 55 Year
  Sex: Male

DRUGS (1)
  1. NICORETTE (MINT) [Suspect]
     Dates: start: 20060317, end: 20060317

REACTIONS (2)
  - PHARYNGEAL OEDEMA [None]
  - URTICARIA [None]
